FAERS Safety Report 25524974 (Version 1)
Quarter: 2025Q3

REPORT INFORMATION
  Report Type: Spontaneous
  Country: EU (occurrence: EU)
  Receive Date: 20250707
  Receipt Date: 20250707
  Transmission Date: 20251021
  Serious: Yes (Hospitalization, Other)
  Sender: CHEPLAPHARM
  Company Number: EU-CHEPLA-2025008232

PATIENT
  Sex: Female
  Weight: 375 kg

DRUGS (4)
  1. GANCICLOVIR [Suspect]
     Active Substance: GANCICLOVIR
     Indication: Congenital cytomegalovirus infection
  2. GANCICLOVIR [Suspect]
     Active Substance: GANCICLOVIR
     Indication: Congenital cytomegalovirus infection
  3. VALGANCICLOVIR [Suspect]
     Active Substance: VALGANCICLOVIR
     Indication: Congenital cytomegalovirus infection
  4. VALGANCICLOVIR [Suspect]
     Active Substance: VALGANCICLOVIR
     Indication: Congenital cytomegalovirus infection

REACTIONS (10)
  - Cardiomyopathy [Recovered/Resolved]
  - Coarctation of the aorta [Recovered/Resolved]
  - Aorta hypoplasia [Recovered/Resolved]
  - Bronchopulmonary dysplasia [Recovered/Resolved]
  - Retinopathy [Unknown]
  - Thrombocytopenia [Unknown]
  - Leukopenia [Unknown]
  - Guillain-Barre syndrome [Recovered/Resolved]
  - Off label use [Unknown]
  - Off label use [Unknown]
